FAERS Safety Report 6401002-6 (Version None)
Quarter: 2009Q4

REPORT INFORMATION
  Report Type: 
  Country: None (occurrence: None)
  Receive Date: 20091015
  Receipt Date: 20070320
  Transmission Date: 20100525
  Serious: Yes (Life-Threatening, Hospitalization, Other)
  Sender: FDA-Public Use
  Company Number: US-ASTRAZENECA-2009SE18321

PATIENT
  Age: 19150 Day
  Sex: Male
  Weight: 90.3 kg

DRUGS (9)
  1. SEROQUEL [Suspect]
     Dosage: 25MG-500MG
     Route: 048
     Dates: start: 20030101
  2. PREDNISONE TAB [Concomitant]
     Dosage: 10MG-40MG
     Route: 048
     Dates: start: 20040914
  3. VIAGRA [Concomitant]
     Route: 048
     Dates: start: 20021005
  4. CARDIZEM [Concomitant]
     Route: 048
     Dates: start: 20010723
  5. NEURONTIN [Concomitant]
     Dosage: 300MG-600MG
     Route: 048
     Dates: start: 20030217
  6. ASPIRIN [Concomitant]
     Dosage: 81MG-325MG
     Route: 048
     Dates: start: 20050224
  7. HYDROCHLOROTHIAZIDE [Concomitant]
     Route: 048
     Dates: start: 20040101
  8. INSULIN HUMAN REGULAR [Concomitant]
     Dosage: 100 U/1 ML
     Route: 058
     Dates: start: 20041215
  9. GLUCOPHAGE [Concomitant]
     Route: 048
     Dates: start: 20041223

REACTIONS (40)
  - ADRENAL INSUFFICIENCY [None]
  - ANXIETY [None]
  - ASTHENIA [None]
  - BENIGN PROSTATIC HYPERPLASIA [None]
  - BRONCHITIS [None]
  - CHEST PAIN [None]
  - CHRONIC OBSTRUCTIVE PULMONARY DISEASE [None]
  - CONVULSION [None]
  - CORONARY ARTERY DISEASE [None]
  - DEEP VEIN THROMBOSIS [None]
  - DERMATITIS CONTACT [None]
  - DIABETIC NEUROPATHY [None]
  - ERECTILE DYSFUNCTION [None]
  - FEBRILE CONVULSION [None]
  - GASTROENTERITIS [None]
  - GASTROINTESTINAL HAEMORRHAGE [None]
  - HEADACHE [None]
  - HYPERSOMNIA [None]
  - HYPONATRAEMIA [None]
  - HYPOTENSION [None]
  - HYPOVOLAEMIA [None]
  - MOVEMENT DISORDER [None]
  - MUSCLE ATROPHY [None]
  - MYOPATHY [None]
  - NEPHROTIC SYNDROME [None]
  - NEUROPATHY PERIPHERAL [None]
  - OBSTRUCTIVE UROPATHY [None]
  - OSTEOARTHRITIS [None]
  - PARALYSIS [None]
  - PARANEOPLASTIC SYNDROME [None]
  - PARAPLEGIA [None]
  - PERIPHERAL VASCULAR DISORDER [None]
  - PNEUMONIA [None]
  - POSTURE ABNORMAL [None]
  - RESPIRATORY FAILURE [None]
  - RHINITIS ALLERGIC [None]
  - SEPTIC SHOCK [None]
  - SINUS TACHYCARDIA [None]
  - TRANSIENT ISCHAEMIC ATTACK [None]
  - TYPE 2 DIABETES MELLITUS [None]
